FAERS Safety Report 6707030-5 (Version None)
Quarter: 2010Q2

REPORT INFORMATION
  Report Type: 
  Country: None (occurrence: None)
  Receive Date: 20100503
  Receipt Date: 20100422
  Transmission Date: 20101027
  Serious: Yes (Other)
  Sender: FDA-Public Use
  Company Number: CA-JNJFOC-20100407050

PATIENT
  Age: 83 Year
  Sex: Female
  Weight: 69.85 kg

DRUGS (4)
  1. TYLENOL (CAPLET) [Suspect]
     Route: 048
  2. TYLENOL (CAPLET) [Suspect]
     Indication: ABDOMINAL PAIN UPPER
     Route: 048
  3. VITAMIN TAB [Concomitant]
  4. CALCIUM [Concomitant]

REACTIONS (3)
  - DIARRHOEA [None]
  - HAEMATOCHEZIA [None]
  - PRODUCT QUALITY ISSUE [None]
